FAERS Safety Report 7146177-9 (Version None)
Quarter: 2010Q4

REPORT INFORMATION
  Report Type: 
  Country: None (occurrence: None)
  Receive Date: 20101208
  Receipt Date: 20101124
  Transmission Date: 20110411
  Serious: Yes (Hospitalization, Other)
  Sender: FDA-Public Use
  Company Number: PHEH2007US05871

PATIENT
  Sex: Female

DRUGS (5)
  1. ZELNORM [Suspect]
     Dosage: UNK
     Dates: start: 19980101
  2. WELLBUTRIN [Concomitant]
  3. CARBAMAZEPINE [Concomitant]
  4. STRATTERA [Concomitant]
  5. ACTONEL [Concomitant]

REACTIONS (45)
  - ABDOMINAL ADHESIONS [None]
  - ABDOMINAL PAIN UPPER [None]
  - ACUTE MYOCARDIAL INFARCTION [None]
  - ADJUSTMENT DISORDER [None]
  - ANXIETY [None]
  - AORTIC VALVE INCOMPETENCE [None]
  - APHASIA [None]
  - ARTERIOSCLEROSIS [None]
  - ARTHRALGIA [None]
  - ATRIAL TACHYCARDIA [None]
  - BALANCE DISORDER [None]
  - BIPOLAR DISORDER [None]
  - CENTRAL NERVOUS SYSTEM LESION [None]
  - CEREBROVASCULAR ACCIDENT [None]
  - CHEST PAIN [None]
  - COGNITIVE DISORDER [None]
  - DEPRESSION [None]
  - DISTURBANCE IN ATTENTION [None]
  - DIZZINESS [None]
  - DYSGRAPHIA [None]
  - DYSPHAGIA [None]
  - DYSTHYMIC DISORDER [None]
  - ELECTROCARDIOGRAM CHANGE [None]
  - FALL [None]
  - FATIGUE [None]
  - GASTROOESOPHAGEAL REFLUX DISEASE [None]
  - HEADACHE [None]
  - HEMIPARESIS [None]
  - HYPERLIPIDAEMIA [None]
  - HYPERTENSION [None]
  - HYPOAESTHESIA [None]
  - MEMORY IMPAIRMENT [None]
  - NEUROPATHY PERIPHERAL [None]
  - OROPHARYNGEAL PAIN [None]
  - PAIN IN EXTREMITY [None]
  - PARAESTHESIA [None]
  - PIGMENTATION DISORDER [None]
  - READING DISORDER [None]
  - SKIN PAPILLOMA [None]
  - SMALL INTESTINAL OBSTRUCTION [None]
  - TACHYCARDIA [None]
  - TINNITUS [None]
  - TREMOR [None]
  - VISUAL IMPAIRMENT [None]
  - WEIGHT DECREASED [None]
